FAERS Safety Report 4510412-3 (Version None)
Quarter: 2004Q4

REPORT INFORMATION
  Report Type: 
  Country: None (occurrence: None)
  Receive Date: 20041122
  Receipt Date: 20041105
  Transmission Date: 20050328
  Serious: Yes (Hospitalization)
  Sender: FDA-Public Use
  Company Number: 203388

PATIENT
  Age: 38 Year
  Sex: Male
  Weight: 77.1115 kg

DRUGS (7)
  1. AVONEX [Suspect]
     Indication: MULTIPLE SCLEROSIS
     Dosage: 30 MCG QW IM
     Route: 030
     Dates: start: 19990101, end: 20040601
  2. AVONEX [Suspect]
     Indication: MULTIPLE SCLEROSIS
     Dosage: 30 MCG QW IM
     Route: 030
     Dates: start: 20040601, end: 20040101
  3. NEURONTIN [Concomitant]
  4. DEXTROSTAT [Concomitant]
  5. PERCOCET [Concomitant]
  6. DALMANE [Concomitant]
  7. FLOMAX    CHIESI [Concomitant]

REACTIONS (17)
  - AMNESIA [None]
  - CONCUSSION [None]
  - CONFUSIONAL STATE [None]
  - CONVULSION [None]
  - DIFFICULTY IN WALKING [None]
  - DYSARTHRIA [None]
  - FALL [None]
  - HALLUCINATION [None]
  - HYPOAESTHESIA [None]
  - INFLUENZA LIKE ILLNESS [None]
  - MUSCLE SPASMS [None]
  - MUSCULAR WEAKNESS [None]
  - PNEUMONIA [None]
  - POSTICTAL STATE [None]
  - RESPIRATORY ARREST [None]
  - URINARY HESITATION [None]
  - URINARY INCONTINENCE [None]
